FAERS Safety Report 15286593 (Version 1)
Quarter: 2018Q3

REPORT INFORMATION
  Report Type: Spontaneous
  Country: US (occurrence: US)
  Receive Date: 20180816
  Receipt Date: 20180816
  Transmission Date: 20181010
  Serious: No
  Sender: FDA-Public Use
  Company Number: US-009507513-1808USA000555

PATIENT
  Sex: Female
  Weight: 89.8 kg

DRUGS (2)
  1. NUVARING [Suspect]
     Active Substance: ETHINYL ESTRADIOL\ETONOGESTREL
     Indication: CONTRACEPTION
     Dosage: 0.015/0.12 CONTINOUSLY FOR 4 WEEKS
     Route: 067
  2. ZOLOFT [Concomitant]
     Active Substance: SERTRALINE HYDROCHLORIDE
     Dosage: CONTINUOUSLY FOR 4 WEEKS

REACTIONS (5)
  - Intentional medical device removal by patient [Unknown]
  - Incorrect drug administration duration [Unknown]
  - Metrorrhagia [Unknown]
  - Amenorrhoea [Recovered/Resolved]
  - Inappropriate schedule of drug administration [Unknown]
